FAERS Safety Report 19402798 (Version 2)
Quarter: 2021Q2

REPORT INFORMATION
  Report Type: Spontaneous
  Country: US (occurrence: US)
  Receive Date: 20210610
  Receipt Date: 20210621
  Transmission Date: 20210717
  Serious: Yes (Hospitalization)
  Sender: FDA-Public Use
  Company Number: US-TEVA-2021-US-1920047

PATIENT
  Age: 41 Year
  Sex: Female

DRUGS (19)
  1. ACYCLOVIR. [Concomitant]
     Active Substance: ACYCLOVIR
     Indication: SOFT TISSUE INFECTION
     Route: 065
  2. VASOPRESSIN. [Suspect]
     Active Substance: VASOPRESSIN
     Indication: HYPOTENSION
     Dosage: 0.4UNITS/KG/MIN
     Route: 050
  3. DOPAMINE [Suspect]
     Active Substance: DOPAMINE HYDROCHLORIDE
     Indication: HYPOTENSION
     Dosage: 2.5MCG/KG/MIN
     Route: 050
  4. CEFEPIME [Concomitant]
     Active Substance: CEFEPIME HYDROCHLORIDE
     Indication: MENINGITIS
  5. EPINEPHRINE. [Suspect]
     Active Substance: EPINEPHRINE
     Indication: HYPOTENSION
     Dosage: 0.5MCG/KG/MIN
     Route: 050
  6. AMPICILLIN [Concomitant]
     Active Substance: AMPICILLIN
     Indication: SOFT TISSUE INFECTION
     Route: 065
  7. GIAPREZA [Suspect]
     Active Substance: ANGIOTENSIN II
     Indication: HYPOTENSION
     Dosage: INITIAL DOSAGE NOT STATED
     Route: 065
  8. GIAPREZA [Suspect]
     Active Substance: ANGIOTENSIN II
     Dosage: MAXIMUM DOSE: 40NG/KG/MIN
     Route: 065
  9. VANCOMYCIN [Concomitant]
     Active Substance: VANCOMYCIN
     Indication: SOFT TISSUE INFECTION
     Route: 065
  10. CEFEPIME [Concomitant]
     Active Substance: CEFEPIME HYDROCHLORIDE
     Indication: SOFT TISSUE INFECTION
     Route: 065
  11. FLUCONAZOLE. [Concomitant]
     Active Substance: FLUCONAZOLE
     Indication: SOFT TISSUE INFECTION
     Route: 065
  12. EPOPROSTENOL. [Concomitant]
     Active Substance: EPOPROSTENOL
     Indication: PULMONARY OEDEMA
     Route: 065
  13. CLINDAMYCIN. [Concomitant]
     Active Substance: CLINDAMYCIN
     Indication: SOFT TISSUE INFECTION
     Route: 065
  14. VANCOMYCIN [Concomitant]
     Active Substance: VANCOMYCIN
     Indication: MENINGITIS
  15. AMPICILLIN [Concomitant]
     Active Substance: AMPICILLIN
     Indication: MENINGITIS
  16. ACYCLOVIR. [Concomitant]
     Active Substance: ACYCLOVIR
     Indication: MENINGITIS
  17. NOREPINEPHRINE. [Suspect]
     Active Substance: NOREPINEPHRINE
     Indication: HYPOTENSION
     Dosage: 0.3MCG/KG/MIN
     Route: 050
  18. CLINDAMYCIN. [Concomitant]
     Active Substance: CLINDAMYCIN
     Indication: MENINGITIS
  19. FLUCONAZOLE. [Concomitant]
     Active Substance: FLUCONAZOLE
     Indication: MENINGITIS

REACTIONS (6)
  - Extremity necrosis [Unknown]
  - Deep vein thrombosis [Unknown]
  - Livedo reticularis [Unknown]
  - Renal infarct [Unknown]
  - Peripheral ischaemia [Unknown]
  - Splenic infarction [Unknown]
